FAERS Safety Report 15639476 (Version 1)
Quarter: 2018Q4

REPORT INFORMATION
  Report Type: Spontaneous
  Country: TN (occurrence: TN)
  Receive Date: 20181120
  Receipt Date: 20181120
  Transmission Date: 20190205
  Serious: Yes (Other)
  Sender: FDA-Public Use
  Company Number: TN-PURACAP PHARMACEUTICAL LLC-2018EPC00468

PATIENT
  Age: 55 Year
  Sex: Female

DRUGS (3)
  1. PIROXICAM. [Suspect]
     Active Substance: PIROXICAM
     Dosage: UNK
     Route: 065
     Dates: start: 201711
  2. NIFLUMIC ACID [Suspect]
     Active Substance: NIFLUMIC ACID
     Dosage: UNK
     Route: 065
     Dates: start: 201703
  3. IBUPROFEN. [Suspect]
     Active Substance: IBUPROFEN
     Indication: ANGINA PECTORIS
     Dosage: UNK
     Route: 065

REACTIONS (2)
  - Vasculitis [Recovered/Resolved]
  - Therapeutic product cross-reactivity [Recovered/Resolved]
